FAERS Safety Report 7291426-X (Version None)
Quarter: 2011Q1

REPORT INFORMATION
  Report Type: 
  Country: None (occurrence: None)
  Receive Date: 20110214
  Receipt Date: 20110208
  Transmission Date: 20110831
  Serious: Yes (Hospitalization)
  Sender: FDA-Public Use
  Company Number: B0699478A

PATIENT
  Age: 9 Year
  Sex: Female

DRUGS (1)
  1. AUGMENTIN [Suspect]
     Dosage: 457MG PER DAY
     Route: 048
     Dates: start: 20090310, end: 20090325

REACTIONS (5)
  - HENOCH-SCHONLEIN PURPURA [None]
  - RASH [None]
  - RENAL DISORDER [None]
  - GLOMERULONEPHRITIS [None]
  - HAEMATEMESIS [None]
